FAERS Safety Report 8313087-0 (Version None)
Quarter: 2012Q2

REPORT INFORMATION
  Report Type: 
  Country: None (occurrence: None)
  Receive Date: 20120426
  Receipt Date: 20120420
  Transmission Date: 20120825
  Serious: Yes (Other)
  Sender: FDA-Public Use
  Company Number: US-PFIZER INC-2012077935

PATIENT
  Sex: Female

DRUGS (7)
  1. NEURONTIN [Suspect]
     Indication: NEUROPATHY PERIPHERAL
     Dosage: 100 MG, 3X/DAY
     Route: 048
     Dates: end: 20120301
  2. CALAN [Concomitant]
     Dosage: UNK
  3. ALLEGRA [Concomitant]
     Dosage: UNK
  4. EFFEXOR XR [Suspect]
     Indication: DEPRESSION
     Dosage: 75 MG, 3X/DAY
     Route: 048
  5. PROTONIX [Suspect]
     Indication: GASTROOESOPHAGEAL REFLUX DISEASE
     Dosage: 50 MG, 1X/DAY
     Route: 048
     Dates: end: 20120301
  6. NEURONTIN [Suspect]
     Dosage: 100 MG, 3PO QHS
     Route: 048
  7. PREMARIN [Suspect]
     Indication: HORMONE REPLACEMENT THERAPY
     Dosage: 0.9 MG, 1X/DAY
     Route: 048

REACTIONS (4)
  - BLOOD PARATHYROID HORMONE ABNORMAL [None]
  - PAIN [None]
  - VITAMIN D DEFICIENCY [None]
  - HEART RATE INCREASED [None]
